FAERS Safety Report 25278593 (Version 1)
Quarter: 2025Q2

REPORT INFORMATION
  Report Type: Spontaneous
  Country: GB (occurrence: GB)
  Receive Date: 20250507
  Receipt Date: 20250507
  Transmission Date: 20250717
  Serious: Yes (Hospitalization, Other)
  Sender: PFIZER
  Company Number: None

PATIENT
  Age: 25 Year
  Sex: Male
  Weight: 55 kg

DRUGS (1)
  1. KETAMINE HYDROCHLORIDE [Suspect]
     Active Substance: KETAMINE HYDROCHLORIDE

REACTIONS (9)
  - Drug abuse [Unknown]
  - Loss of consciousness [Unknown]
  - Haematuria [Unknown]
  - Acute kidney injury [Recovering/Resolving]
  - Blood sodium decreased [Unknown]
  - Hypophagia [Unknown]
  - Dysuria [Unknown]
  - Kidney enlargement [Unknown]
  - Kidney congestion [Unknown]

NARRATIVE: CASE EVENT DATE: 20250410
